FAERS Safety Report 10090558 (Version 1)
Quarter: 2014Q2

REPORT INFORMATION
  Report Type: Spontaneous
  Country: DK (occurrence: GB)
  Receive Date: 20140421
  Receipt Date: 20140421
  Transmission Date: 20141212
  Serious: Yes (Other)
  Sender: FDA-Public Use
  Company Number: GB-FRI-1000066605

PATIENT
  Age: 34 Year
  Sex: Male

DRUGS (4)
  1. CITALOPRAM [Suspect]
     Dosage: 20 MG
     Route: 048
  2. ZOPICLONE [Suspect]
     Indication: INSOMNIA
     Dosage: 7.5 MG DAILY (AT BED TIME)
     Route: 048
  3. LORAZEPAM [Suspect]
     Dosage: 1 MG
  4. VALIUM [Concomitant]

REACTIONS (3)
  - Aggression [Unknown]
  - Amnesia [Unknown]
  - Emotional disorder [Unknown]
